FAERS Safety Report 17066697 (Version 1)
Quarter: 2019Q4

REPORT INFORMATION
  Report Type: Spontaneous
  Country: US (occurrence: US)
  Receive Date: 20191024
  Receipt Date: 20191024
  Transmission Date: 20200122
  Serious: Yes (Hospitalization)
  Sender: FDA-Public Use
  Company Number: None

PATIENT
  Age: 64 Year
  Sex: Male

DRUGS (15)
  1. XOLAIR [Suspect]
     Active Substance: OMALIZUMAB
     Indication: ASTHMA
     Dosage: ?          OTHER DOSE:75MG/0.5ML;?
     Route: 058
     Dates: start: 20190510
  2. NOVOFINE AUT MIS [Concomitant]
  3. XOLAIR [Suspect]
     Active Substance: OMALIZUMAB
     Indication: ASTHMA
     Route: 058
     Dates: start: 20190510
  4. BROVANA [Concomitant]
     Active Substance: ARFORMOTEROL TARTRATE
  5. BUDESONIDE. [Concomitant]
     Active Substance: BUDESONIDE
  6. ONDANSETRON [Concomitant]
     Active Substance: ONDANSETRON
  7. VICTOZA [Concomitant]
     Active Substance: LIRAGLUTIDE
  8. VITAMIN D [Concomitant]
     Active Substance: VITAMIN D NOS
  9. LISINOPRIL AND HYDROCHLOROTHIAZIDE [Concomitant]
     Active Substance: HYDROCHLOROTHIAZIDE\LISINOPRIL
  10. PYRIDOSTIGMI [Concomitant]
  11. CYCLOBENZAPR [Concomitant]
     Active Substance: CYCLOBENZAPRINE
  12. SPIRIVA [Concomitant]
     Active Substance: TIOTROPIUM BROMIDE MONOHYDRATE
  13. NORTRIPTYLIN [Concomitant]
     Active Substance: NORTRIPTYLINE
  14. BP PEN NEEDL MIS [Concomitant]
  15. HUMALOG KWIK [Concomitant]

REACTIONS (1)
  - Myasthenia gravis [None]

NARRATIVE: CASE EVENT DATE: 20191023
